FAERS Safety Report 4521684-3 (Version None)
Quarter: 2004Q4

REPORT INFORMATION
  Report Type: 
  Country: None (occurrence: None)
  Receive Date: 20041206
  Receipt Date: 20041119
  Transmission Date: 20050328
  Serious: Yes (Other)
  Sender: FDA-Public Use
  Company Number: 210824

PATIENT
  Age: 56 Year
  Sex: Female
  Weight: 64.5 kg

DRUGS (5)
  1. HERCEPTIN [Suspect]
     Indication: BREAST CANCER METASTATIC
     Dosage: SEE IMAGE, INTRAVENOUS
     Route: 042
     Dates: start: 20040401, end: 20040401
  2. HERCEPTIN [Suspect]
     Indication: BREAST CANCER METASTATIC
     Dosage: SEE IMAGE, INTRAVENOUS
     Route: 042
     Dates: start: 20040408, end: 20041118
  3. HERCEPTIN [Suspect]
     Indication: BREAST CANCER METASTATIC
     Dosage: SEE IMAGE, INTRAVENOUS
     Route: 042
     Dates: start: 20041125
  4. EPIRUBICIN [Suspect]
     Dosage: 60 MG/M2, Q3W, INTRAVENOUS
     Route: 042
     Dates: start: 20040401, end: 20040715
  5. CYCLOFOSFAMIDE (CYCLOPHOSPHAMIDE) [Suspect]
     Dosage: 600 MG/M2, Q3W
     Dates: start: 20040401, end: 20040715

REACTIONS (2)
  - EJECTION FRACTION DECREASED [None]
  - PALPITATIONS [None]
